FAERS Safety Report 19577123 (Version 2)
Quarter: 2022Q1

REPORT INFORMATION
  Report Type: Spontaneous
  Country: US (occurrence: None)
  Receive Date: 20210719
  Receipt Date: 20220329
  Transmission Date: 20220424
  Serious: No
  Sender: FDA-Public Use
  Company Number: 2021A581858

PATIENT
  Age: 17685 Day
  Sex: Female
  Weight: 158.8 kg

DRUGS (2)
  1. FASENRA [Suspect]
     Active Substance: BENRALIZUMAB
     Indication: Asthma
     Route: 058
     Dates: start: 20210629
  2. FASENRA [Suspect]
     Active Substance: BENRALIZUMAB
     Indication: Chronic obstructive pulmonary disease
     Route: 058
     Dates: start: 20210629

REACTIONS (4)
  - Injection site pain [Recovered/Resolved]
  - Incorrect dose administered by device [Unknown]
  - Device leakage [Unknown]
  - Needle issue [Unknown]

NARRATIVE: CASE EVENT DATE: 20210629
